FAERS Safety Report 19296107 (Version 1)
Quarter: 2021Q2

REPORT INFORMATION
  Report Type: Spontaneous
  Country: FR (occurrence: FR)
  Receive Date: 20210524
  Receipt Date: 20210524
  Transmission Date: 20210717
  Serious: Yes (Congenital Anomaly)
  Sender: FDA-Public Use
  Company Number: FR-SUN PHARMACEUTICAL INDUSTRIES LTD-2021RR-297550

PATIENT
  Age: 1 Day
  Sex: Female

DRUGS (5)
  1. TERCIAN [Suspect]
     Active Substance: CYAMEMAZINE
     Indication: DEPRESSION
     Dosage: 150 MILLIGRAM, UNK
     Route: 064
     Dates: start: 202004, end: 202012
  2. DEPAMIDE [Suspect]
     Active Substance: VALPROMIDE
     Indication: BORDERLINE PERSONALITY DISORDER
     Dosage: 2 DOSAGE FORM, UNK
     Route: 064
     Dates: start: 202007, end: 202012
  3. VENLAFAXINE [Suspect]
     Active Substance: VENLAFAXINE HYDROCHLORIDE
     Indication: DEPRESSION
     Dosage: 3 DOSAGE FORM, UNK
     Route: 064
     Dates: start: 202004, end: 202012
  4. OLANZAPINE. [Suspect]
     Active Substance: OLANZAPINE
     Indication: DEPRESSION
     Dosage: 10 MILLIGRAM, UNK
     Route: 064
     Dates: start: 202004, end: 202012
  5. LORMETAZEPAM [Suspect]
     Active Substance: LORMETAZEPAM
     Indication: DEPRESSION
     Dosage: 2 MILLIGRAM, UNK
     Route: 064
     Dates: start: 202004, end: 202012

REACTIONS (3)
  - Hypotonia neonatal [Not Recovered/Not Resolved]
  - Foot deformity [Not Recovered/Not Resolved]
  - Single umbilical artery [Not Recovered/Not Resolved]

NARRATIVE: CASE EVENT DATE: 202012
